FAERS Safety Report 6683194-7 (Version None)
Quarter: 2010Q2

REPORT INFORMATION
  Report Type: 
  Country: None (occurrence: None)
  Receive Date: 20100415
  Receipt Date: 20100404
  Transmission Date: 20101027
  Serious: Yes (Other)
  Sender: FDA-Public Use
  Company Number: US-JNJCH-2010008437

PATIENT
  Sex: Female

DRUGS (1)
  1. LUBRIDERM INTENSE SKIN REPAIR BODY LOTION [Suspect]
     Indication: DRUG USE FOR UNKNOWN INDICATION
     Dosage: TEXT:UNKNOWN
     Route: 061

REACTIONS (1)
  - RASH [None]
